FAERS Safety Report 6311546-3 (Version None)
Quarter: 2009Q3

REPORT INFORMATION
  Report Type: 
  Country: None (occurrence: None)
  Receive Date: 20090817
  Receipt Date: 20090805
  Transmission Date: 20100115
  Serious: Yes (Other)
  Sender: FDA-Public Use
  Company Number: JP-PFIZER INC-2009223159

PATIENT
  Age: 59 Year

DRUGS (12)
  1. ZYVOX [Suspect]
     Indication: STAPHYLOCOCCAL INFECTION
     Dosage: 600 MG, 2X/DAY
     Route: 048
     Dates: start: 20090601, end: 20090610
  2. ZYVOX [Suspect]
     Dosage: 600 MG, 2X/DAY
     Route: 048
     Dates: start: 20090622, end: 20090703
  3. BAKTAR [Concomitant]
     Dosage: UNK
     Route: 048
  4. TAKEPRON [Concomitant]
  5. NORVASC [Concomitant]
     Dosage: UNK
  6. HALCION [Concomitant]
  7. EURODIN [Concomitant]
  8. PURSENNID [Concomitant]
  9. SOSEGON [Concomitant]
  10. BLADDERON [Concomitant]
  11. LEPETAN [Concomitant]
  12. VOLTAREN [Concomitant]

REACTIONS (13)
  - AGITATION [None]
  - ASTHENIA [None]
  - BLOOD PRESSURE INCREASED [None]
  - CHILLS [None]
  - COLD SWEAT [None]
  - INSOMNIA [None]
  - NAUSEA [None]
  - PLATELET COUNT DECREASED [None]
  - POLLAKIURIA [None]
  - POLYURIA [None]
  - THIRST [None]
  - VISUAL IMPAIRMENT [None]
  - VOMITING [None]
